FAERS Safety Report 8041066-X (Version None)
Quarter: 2012Q1

REPORT INFORMATION
  Report Type: 
  Country: None (occurrence: None)
  Receive Date: 20120109
  Receipt Date: 20111227
  Transmission Date: 20120608
  Serious: Yes (Other)
  Sender: FDA-Public Use
  Company Number: 11-101

PATIENT
  Age: 70 Year
  Sex: Female

DRUGS (2)
  1. CEFUROXIME (NO PREF. NAME) [Suspect]
     Indication: PROPHYLAXIS
     Dosage: 0.5 ML;X1;
  2. CEFUROXIME (NO PREF. NAME) [Suspect]
     Indication: POST PROCEDURAL INFECTION
     Dosage: 0.5 ML;X1;

REACTIONS (7)
  - MACULAR ISCHAEMIA [None]
  - RETINAL OEDEMA [None]
  - WRONG DRUG ADMINISTERED [None]
  - RETINAL VASCULAR DISORDER [None]
  - INTRAOCULAR PRESSURE INCREASED [None]
  - CONFUSIONAL STATE [None]
  - EYE HAEMORRHAGE [None]
